FAERS Safety Report 20431259 (Version 2)
Quarter: 2022Q1

REPORT INFORMATION
  Report Type: Spontaneous
  Country: US (occurrence: None)
  Receive Date: 20220204
  Receipt Date: 20220215
  Transmission Date: 20220424
  Serious: Yes (Death, Hospitalization)
  Sender: FDA-Public Use
  Company Number: US-MDD US Operations-MDD202202-000163

PATIENT
  Age: 88 Year
  Sex: Male

DRUGS (10)
  1. APOKYN [Suspect]
     Active Substance: APOMORPHINE HYDROCHLORIDE
     Indication: Product used for unknown indication
     Dates: start: 20211026
  2. CARBIDOPA\LEVODOPA [Concomitant]
     Active Substance: CARBIDOPA\LEVODOPA
     Dosage: EACH DF OF 25-100 MG
  3. FINASTERIDE [Concomitant]
     Active Substance: FINASTERIDE
  4. AMANTADINE [Concomitant]
     Active Substance: AMANTADINE
  5. LEVOTHYROXINE [Concomitant]
     Active Substance: LEVOTHYROXINE
  6. NOURIANZ [Concomitant]
     Active Substance: ISTRADEFYLLINE
  7. SIMVASTATIN [Concomitant]
     Active Substance: SIMVASTATIN
  8. TAMSULOSIN [Concomitant]
     Active Substance: TAMSULOSIN
     Dosage: 0.4 MG
  9. TRAZODONE [Concomitant]
     Active Substance: TRAZODONE HYDROCHLORIDE
  10. AMLODIPINE [Concomitant]
     Active Substance: AMLODIPINE BESYLATE

REACTIONS (14)
  - Renal failure [Fatal]
  - Multiple organ dysfunction syndrome [Fatal]
  - Metabolic encephalopathy [Fatal]
  - Acidosis [Unknown]
  - Hypertension [Unknown]
  - Basal cell carcinoma [Unknown]
  - Arrhythmia [Unknown]
  - Haematuria [Unknown]
  - Urinary retention [Unknown]
  - Azotaemia [Unknown]
  - Dehydration [Unknown]
  - Weight decreased [Unknown]
  - Decreased appetite [Unknown]
  - Fall [Unknown]

NARRATIVE: CASE EVENT DATE: 20220127
